FAERS Safety Report 14454069 (Version 1)
Quarter: 2018Q1

REPORT INFORMATION
  Report Type: Spontaneous
  Country: US (occurrence: US)
  Receive Date: 20180129
  Receipt Date: 20180129
  Transmission Date: 20180509
  Serious: No
  Sender: FDA-Public Use
  Company Number: US-PERRIGO-17US002524

PATIENT
  Sex: Female
  Weight: 78.5 kg

DRUGS (3)
  1. IBUPROFEN AND DIPHENHYDRAMINE CITRATE [Suspect]
     Active Substance: DIPHENHYDRAMINE CITRATE\IBUPROFEN
     Indication: PAIN
     Dosage: 1 TABLET, NIGHTLY, PRN
     Route: 048
     Dates: start: 2011, end: 201702
  2. IBUPROFEN AND DIPHENHYDRAMINE CITRATE [Suspect]
     Active Substance: DIPHENHYDRAMINE CITRATE\IBUPROFEN
     Indication: INSOMNIA
     Dosage: 1 TO 2 TABLETS, NIGHTLY, PRN
     Route: 048
     Dates: start: 201702, end: 201703
  3. IBUPROFEN AND DIPHENHYDRAMINE CITRATE [Suspect]
     Active Substance: DIPHENHYDRAMINE CITRATE\IBUPROFEN
     Dosage: 1 TO 2.5 TABLETS, NIGHTLY, PRN
     Route: 048
     Dates: start: 201703, end: 20170315

REACTIONS (3)
  - Wrong technique in product usage process [Recovered/Resolved]
  - Drug effect decreased [Unknown]
  - Incorrect dose administered [Recovered/Resolved]

NARRATIVE: CASE EVENT DATE: 2011
